FAERS Safety Report 10213913 (Version 1)
Quarter: 2014Q2

REPORT INFORMATION
  Report Type: Spontaneous
  Country: US (occurrence: None)
  Receive Date: 20140602
  Receipt Date: 20140602
  Transmission Date: 20141212
  Serious: Yes (Life-Threatening, Hospitalization, Disabling)
  Sender: FDA-Public Use
  Company Number: None

PATIENT
  Age: 58 Year
  Sex: Male
  Weight: 59.88 kg

DRUGS (2)
  1. PRIALT [Suspect]
     Indication: INTERVERTEBRAL DISC DEGENERATION
     Dosage: 24/7?INTRATHECAL PUMP
     Dates: start: 20130331, end: 20140417
  2. PRIALT [Suspect]
     Indication: INTERVERTEBRAL DISC PROTRUSION
     Dosage: 24/7?INTRATHECAL PUMP
     Dates: start: 20130331, end: 20140417

REACTIONS (22)
  - Irritability [None]
  - Restlessness [None]
  - Somnolence [None]
  - Paranoia [None]
  - Tremor [None]
  - Fatigue [None]
  - Muscle spasms [None]
  - Confusional state [None]
  - Dizziness [None]
  - Suicidal ideation [None]
  - Depression [None]
  - Constipation [None]
  - Dehydration [None]
  - Hallucination [None]
  - Hallucination, auditory [None]
  - Abdominal pain [None]
  - Formication [None]
  - Gastrointestinal disorder [None]
  - Anal spasm [None]
  - Feeling hot [None]
  - Abasia [None]
  - Weight decreased [None]
